FAERS Safety Report 12256853 (Version 1)
Quarter: 2016Q2

REPORT INFORMATION
  Report Type: Report from Study
  Country: GB (occurrence: GB)
  Receive Date: 20160412
  Receipt Date: 20160412
  Transmission Date: 20160815
  Serious: Yes (Hospitalization)
  Sender: FDA-Public Use
  Company Number: GB-GLAXOSMITHKLINE-GB2016GSK047397

PATIENT
  Age: 2 Year
  Sex: Male
  Weight: 16.3 kg

DRUGS (6)
  1. ZANAMIVIR [Suspect]
     Active Substance: ZANAMIVIR
     Indication: INFLUENZA
     Dosage: 228 MG, BID
     Route: 042
     Dates: start: 20160401
  2. KETAMINE [Concomitant]
     Active Substance: KETAMINE
     Dosage: UNK
     Dates: start: 20160328, end: 20160401
  3. ZANAMIVIR [Suspect]
     Active Substance: ZANAMIVIR
     Dosage: 1 UNK, UNK
     Dates: start: 20160402
  4. ERYTHROMYCIN. [Concomitant]
     Active Substance: ERYTHROMYCIN
     Dosage: 250 MG, QD
     Dates: start: 20160330, end: 20160403
  5. CLONIDINE. [Concomitant]
     Active Substance: CLONIDINE
     Dosage: 80 MG, TID
     Dates: start: 20160328, end: 20160401
  6. MIDAZOLAM [Concomitant]
     Active Substance: MIDAZOLAM\MIDAZOLAM HYDROCHLORIDE
     Dosage: UNK
     Dates: start: 20160328, end: 20160402

REACTIONS (1)
  - Sinus bradycardia [Recovered/Resolved]

NARRATIVE: CASE EVENT DATE: 20160402
